FAERS Safety Report 7156531-7 (Version None)
Quarter: 2010Q4

REPORT INFORMATION
  Report Type: 
  Country: None (occurrence: None)
  Receive Date: 20101214
  Receipt Date: 20091113
  Transmission Date: 20110411
  Serious: No
  Sender: FDA-Public Use
  Company Number: US-ASTRAZENECA-2009SE26422

PATIENT
  Age: 565 Month
  Sex: Male
  Weight: 145.1 kg

DRUGS (3)
  1. CRESTOR [Suspect]
     Route: 048
  2. METFORMIN [Concomitant]
  3. GLIPIZIDE [Concomitant]

REACTIONS (2)
  - ASTHENIA [None]
  - HELICOBACTER INFECTION [None]
